FAERS Safety Report 9828911 (Version 2)
Quarter: 2014Q1

REPORT INFORMATION
  Report Type: Spontaneous
  Country: GB (occurrence: GB)
  Receive Date: 20140118
  Receipt Date: 20140129
  Transmission Date: 20141002
  Serious: Yes (Hospitalization)
  Sender: FDA-Public Use
  Company Number: GB-ABBVIE-14P-167-1191223-00

PATIENT
  Age: 30 Year
  Sex: Male

DRUGS (1)
  1. EPILIM [Suspect]
     Indication: EPILEPSY
     Dates: start: 20110808

REACTIONS (7)
  - Dysphonia [Recovered/Resolved]
  - Stress [Recovered/Resolved]
  - Visual impairment [Recovered/Resolved]
  - Convulsion [Recovered/Resolved]
  - Nausea [Recovered/Resolved]
  - Hallucination [Recovered/Resolved]
  - Asthenia [Recovered/Resolved]
